FAERS Safety Report 24664276 (Version 1)
Quarter: 2024Q4

REPORT INFORMATION
  Report Type: Spontaneous
  Country: CN (occurrence: CN)
  Receive Date: 20241126
  Receipt Date: 20241126
  Transmission Date: 20250114
  Serious: Yes (Hospitalization, Other)
  Sender: MERCK
  Company Number: CN-009507513-2411CHN009197

PATIENT
  Age: 37 Year
  Sex: Female
  Weight: 85 kg

DRUGS (2)
  1. STEGLATRO [Suspect]
     Active Substance: ERTUGLIFLOZIN PIDOLATE
     Indication: Blood glucose abnormal
     Dosage: 5 MG, QD
     Route: 048
     Dates: start: 20241105, end: 20241108
  2. METFORMIN HYDROCHLORIDE [Concomitant]
     Active Substance: METFORMIN HYDROCHLORIDE
     Indication: Blood glucose abnormal
     Dosage: 0.5 G, QD
     Route: 048
     Dates: start: 20241105, end: 20241108

REACTIONS (6)
  - Ketoacidosis [Recovered/Resolved]
  - Palpitations [Recovered/Resolved]
  - Chest discomfort [Recovered/Resolved]
  - Asthma [Recovered/Resolved]
  - Dizziness [Recovered/Resolved]
  - Dysgeusia [Recovering/Resolving]

NARRATIVE: CASE EVENT DATE: 20241108
